FAERS Safety Report 17763897 (Version 1)
Quarter: 2020Q2

REPORT INFORMATION
  Report Type: Spontaneous
  Country: US (occurrence: US)
  Receive Date: 20200510
  Receipt Date: 20200510
  Transmission Date: 20200714
  Serious: No
  Sender: FDA-Public Use
  Company Number: US-ASTRAZENECA-2020SE60711

PATIENT
  Age: 55 Year
  Sex: Female
  Weight: 104.3 kg

DRUGS (2)
  1. BYDUREON [Suspect]
     Active Substance: EXENATIDE
     Indication: TYPE 2 DIABETES MELLITUS
     Route: 058
  2. DEPAKOTE [Concomitant]
     Active Substance: DIVALPROEX SODIUM
     Dosage: UNKNOWN
     Route: 065

REACTIONS (5)
  - Injection site mass [Recovered/Resolved with Sequelae]
  - Urine abnormality [Recovered/Resolved]
  - Asthma [Recovered/Resolved]
  - Blood glucose increased [Not Recovered/Not Resolved]
  - Pruritus [Recovered/Resolved]
